FAERS Safety Report 9745610 (Version 1)
Quarter: 2013Q4

REPORT INFORMATION
  Report Type: Spontaneous
  Country: US (occurrence: None)
  Receive Date: 20131204
  Receipt Date: 20131204
  Transmission Date: 20140711
  Serious: No
  Sender: FDA-Public Use
  Company Number: 2013AP010226

PATIENT
  Age: 63 Year
  Sex: Female

DRUGS (1)
  1. METFORMIN [Suspect]

REACTIONS (4)
  - Lactic acidosis [None]
  - Cyanosis [None]
  - Sepsis [None]
  - Depressed level of consciousness [None]
